FAERS Safety Report 5054213-9 (Version None)
Quarter: 2006Q3

REPORT INFORMATION
  Report Type: 
  Country: None (occurrence: None)
  Receive Date: 20060713
  Receipt Date: 20060703
  Transmission Date: 20061208
  Serious: Yes (Death, Hospitalization)
  Sender: FDA-Public Use
  Company Number: 2006-BP-07596RO

PATIENT
  Age: 70 Year
  Sex: Male

DRUGS (9)
  1. METHOTREXATE [Suspect]
     Indication: PSORIATIC ARTHROPATHY
     Dosage: 7.5 TO 15 MG PER WEEK
  2. FOLATE (FOLATE SODIUM) [Concomitant]
  3. MELOXICAM (MELOXICAM) [Concomitant]
  4. CARVEDILOL [Concomitant]
  5. MODURETICS (MODURETIC) [Concomitant]
  6. AMILORIDE HYDROCHLORIDE (AMILORIDE HYDROCHLORIDE) [Concomitant]
  7. HYDROCHLOROTHIAZIDE [Concomitant]
  8. RAMIPRIL [Concomitant]
  9. CLOPIDOGREL [Concomitant]

REACTIONS (21)
  - ABDOMINAL DISCOMFORT [None]
  - ACTIVATED PARTIAL THROMBOPLASTIN TIME PROLONGED [None]
  - ASCITES [None]
  - ASPARTATE AMINOTRANSFERASE INCREASED [None]
  - BLOOD ALBUMIN DECREASED [None]
  - BLOOD CREATININE INCREASED [None]
  - BLOOD UREA INCREASED [None]
  - BONE MARROW FAILURE [None]
  - C-REACTIVE PROTEIN INCREASED [None]
  - DYSPHAGIA [None]
  - ENTEROBACTER INFECTION [None]
  - GASTROINTESTINAL HAEMORRHAGE [None]
  - MEAN CELL VOLUME INCREASED [None]
  - PANCYTOPENIA [None]
  - PERITONITIS [None]
  - PNEUMONIA [None]
  - POST PROCEDURAL COMPLICATION [None]
  - POST PROCEDURAL HAEMORRHAGE [None]
  - PROTHROMBIN TIME PROLONGED [None]
  - SEPTIC SHOCK [None]
  - STOMATITIS [None]
